FAERS Safety Report 5037624-7 (Version None)
Quarter: 2006Q2

REPORT INFORMATION
  Report Type: 
  Country: None (occurrence: None)
  Receive Date: 20060627
  Receipt Date: 20060627
  Transmission Date: 20061013
  Serious: Yes (Other)
  Sender: FDA-Public Use
  Company Number: None

PATIENT
  Age: 58 Year
  Sex: Male
  Weight: 79.3795 kg

DRUGS (2)
  1. ALENDRONATE SODIUM [Suspect]
     Indication: OSTEOPENIA
     Dosage: 70 Q WK PO
     Route: 048
  2. BONIVA [Suspect]
     Indication: OSTEOPENIA
     Dosage: 150 Q MO IM
     Route: 030

REACTIONS (3)
  - OSTEONECROSIS [None]
  - TOOTH ABSCESS [None]
  - TOOTH EXTRACTION [None]
